FAERS Safety Report 9827730 (Version 2)
Quarter: 2014Q1

REPORT INFORMATION
  Report Type: Spontaneous
  Country: JP (occurrence: JP)
  Receive Date: 20140117
  Receipt Date: 20140217
  Transmission Date: 20141002
  Serious: Yes (Life-Threatening, Other)
  Sender: FDA-Public Use
  Company Number: JP-009507513-1401JPN006829

PATIENT
  Age: 77 Year
  Sex: Female
  Weight: 47 kg

DRUGS (5)
  1. JANUVIA TABLETS 50MG [Suspect]
     Indication: HYPERGLYCAEMIA
     Dosage: 50 MG, QD
     Route: 048
     Dates: start: 20110707, end: 20130926
  2. ALFACALCIDOL [Concomitant]
     Indication: OSTEOPOROSIS
     Dosage: DIVIDED DOSE FREQUENCY UNKNOWN
     Route: 048
     Dates: start: 20120607, end: 20140107
  3. ASPIRIN [Concomitant]
     Indication: MYOCARDIAL ISCHAEMIA
     Dosage: 100 MG, BID,FORMULATION:ENT
     Route: 065
     Dates: start: 20061026, end: 20140107
  4. LIPITOR [Concomitant]
     Indication: DYSLIPIDAEMIA
     Dosage: 10 MG, QD
     Route: 048
     Dates: start: 20061026, end: 20140107
  5. ENALAPRIL MALEATE [Concomitant]
     Indication: HYPERTENSION
     Dosage: 2.5 MG, QD
     Route: 048
     Dates: start: 20061016, end: 20140107

REACTIONS (3)
  - Pancreatic carcinoma [Not Recovered/Not Resolved]
  - Metastases to liver [Unknown]
  - Metastases to adrenals [Unknown]
